FAERS Safety Report 12569682 (Version 2)
Quarter: 2017Q4

REPORT INFORMATION
  Report Type: Other
  Country: CA (occurrence: CA)
  Receive Date: 20160719
  Receipt Date: 20171129
  Transmission Date: 20180320
  Serious: Yes (Hospitalization, Other)
  Sender: FDA-Public Use
  Company Number: CA-PURDUE PHARMA-CAN-2016-0006879

PATIENT
  Age: 68 Year
  Sex: Female

DRUGS (7)
  1. XOLAIR [Suspect]
     Active Substance: OMALIZUMAB
     Dosage: 450 MG, UNK
     Route: 058
  2. XOLAIR [Suspect]
     Active Substance: OMALIZUMAB
     Dosage: 450 MG, UNK
     Route: 057
  3. XOLAIR [Suspect]
     Active Substance: OMALIZUMAB
     Dosage: 450 MG, UNK
     Route: 057
  4. XOLAIR [Suspect]
     Active Substance: OMALIZUMAB
     Indication: CHRONIC SPONTANEOUS URTICARIA
     Dosage: 300 MG, UNK
     Route: 058
  5. XOLAIR [Suspect]
     Active Substance: OMALIZUMAB
     Indication: CHRONIC SPONTANEOUS URTICARIA
     Dosage: 300 MG, UNK
     Route: 058
  6. DILAUDID [Suspect]
     Active Substance: HYDROMORPHONE HYDROCHLORIDE
     Indication: BACK DISORDER
     Dosage: UNK
     Route: 065
  7. SUPEUDOL [Suspect]
     Active Substance: OXYCODONE HYDROCHLORIDE
     Indication: BACK DISORDER
     Dosage: UNK
     Route: 065

REACTIONS (15)
  - Pruritus [Recovering/Resolving]
  - Pruritus generalised [Recovering/Resolving]
  - Drug ineffective [Recovering/Resolving]
  - Dysphagia [Recovering/Resolving]
  - Sensation of foreign body [Recovering/Resolving]
  - Fatigue [Recovering/Resolving]
  - Dysuria [Recovering/Resolving]
  - Erythema [Recovering/Resolving]
  - Incorrect dose administered [Recovering/Resolving]
  - Nephrolithiasis [Recovering/Resolving]
  - Chronic spontaneous urticaria [Recovering/Resolving]
  - Urticaria [Recovering/Resolving]
  - Hypoaesthesia [Recovering/Resolving]
  - Ocular hyperaemia [Recovering/Resolving]
  - Hypersensitivity [Recovering/Resolving]
